FAERS Safety Report 17217097 (Version 1)
Quarter: 2019Q4

REPORT INFORMATION
  Report Type: Spontaneous
  Country: FR (occurrence: FR)
  Receive Date: 20191231
  Receipt Date: 20191231
  Transmission Date: 20200122
  Serious: Yes (Hospitalization, Other)
  Sender: FDA-Public Use
  Company Number: FR-AUROBINDO-AUR-APL-2019-108027

PATIENT
  Sex: Male
  Weight: 2.97 kg

DRUGS (8)
  1. HUMALOG MIX75/25 [Concomitant]
     Active Substance: INSULIN LISPRO
     Indication: GESTATIONAL DIABETES
     Dosage: 14 INTERNATIONAL UNIT, ONCE A DAY
     Route: 064
     Dates: start: 20191017
  2. UMULINE [Concomitant]
     Active Substance: INSULIN HUMAN
     Indication: GESTATIONAL DIABETES
     Dosage: 16 INTERNATIONAL UNIT, ONCE A DAY
     Route: 064
     Dates: start: 20191017
  3. ISOFUNDINE [Concomitant]
     Active Substance: CALCIUM CHLORIDE\MAGNESIUM CHLORIDE\MALIC ACID\POTASSIUM CHLORIDE\SODIUM ACETATE\SODIUM CHLORIDE
     Indication: PRODUCT USED FOR UNKNOWN INDICATION
     Dosage: 500 MILLILITER
     Route: 064
     Dates: start: 20191125
  4. MEGAMAG [Concomitant]
     Active Substance: MAGNESIUM ASPARTATE
     Indication: VITAMIN SUPPLEMENTATION
     Dosage: 6 DOSAGE FORM, ONCE A DAY
     Route: 064
     Dates: start: 20190802
  5. VENLAFAXINE [Suspect]
     Active Substance: VENLAFAXINE HYDROCHLORIDE
     Indication: DEPRESSION
     Dosage: 37.5 MILLIGRAM, ONCE A DAY
     Route: 064
  6. HYDROXYZINE [Suspect]
     Active Substance: HYDROXYZINE HYDROCHLORIDE
     Indication: ANXIETY
     Dosage: 25 MILLIGRAM, ONCE A DAY
     Route: 064
     Dates: start: 20191120
  7. PARACETAMOL [Concomitant]
     Active Substance: ACETAMINOPHEN
     Indication: PAIN
     Dosage: UNK
     Route: 064
     Dates: start: 201908
  8. CHOLURSO [Concomitant]
     Active Substance: URSODIOL
     Indication: CHOLESTASIS
     Dosage: 2 DOSAGE FORM, ONCE A DAY
     Route: 064
     Dates: start: 20191119

REACTIONS (3)
  - Neonatal respiratory distress [Recovered/Resolved]
  - Tremor [Recovered/Resolved]
  - Clonus [Recovered/Resolved]

NARRATIVE: CASE EVENT DATE: 20191125
